FAERS Safety Report 5534839-6 (Version None)
Quarter: 2007Q4

REPORT INFORMATION
  Report Type: 
  Country: None (occurrence: None)
  Receive Date: 20071130
  Receipt Date: 20071115
  Transmission Date: 20080405
  Serious: Yes (Other)
  Sender: FDA-Public Use
  Company Number: S07-NLD-06002-01

PATIENT
  Age: 67 Year
  Sex: Male

DRUGS (5)
  1. CITALOPRAM HYDROBROMIDE [Suspect]
     Dosage: 20 MG QD PO
     Route: 048
     Dates: start: 20040101, end: 20040101
  2. VENLAFAXINE HCL [Suspect]
     Dosage: 75 MG QD PO
     Route: 048
     Dates: start: 20040101, end: 20040101
  3. ACETAMINOPHEN [Concomitant]
  4. IBUPROFEN [Concomitant]
  5. MOVICOLON (NULYTELY) [Concomitant]

REACTIONS (1)
  - OSTEONECROSIS [None]
